FAERS Safety Report 13825429 (Version 1)
Quarter: 2017Q3

REPORT INFORMATION
  Report Type: Spontaneous
  Country: FR (occurrence: FR)
  Receive Date: 20170802
  Receipt Date: 20170802
  Transmission Date: 20171127
  Serious: Yes (Other)
  Sender: FDA-Public Use
  Company Number: FR-BAYER-2017-147146

PATIENT
  Age: 34 Year
  Sex: Female
  Weight: 60 kg

DRUGS (1)
  1. MIRENA [Suspect]
     Active Substance: LEVONORGESTREL
     Indication: CHEMICAL CONTRACEPTION
     Dosage: 200 MCG/24HR, CONT
     Route: 015
     Dates: start: 20130801, end: 20170616

REACTIONS (9)
  - Irritability [Unknown]
  - Papilloma viral infection [Unknown]
  - Breast mass [Unknown]
  - Vaginal discharge [Unknown]
  - Fatigue [Unknown]
  - Headache [Unknown]
  - Depression [Unknown]
  - Libido decreased [Unknown]
  - Morose [Unknown]

NARRATIVE: CASE EVENT DATE: 201701
